FAERS Safety Report 6079456-7 (Version None)
Quarter: 2009Q1

REPORT INFORMATION
  Report Type: 
  Country: None (occurrence: None)
  Receive Date: 20090216
  Receipt Date: 20090216
  Transmission Date: 20090719
  Serious: Yes (Hospitalization)
  Sender: FDA-Public Use
  Company Number: TR-ABBOTT-09P-161-0502909-00

PATIENT
  Age: 55 Year
  Sex: Female

DRUGS (1)
  1. TARKA [Suspect]
     Indication: HYPERTENSION
     Dosage: 180/2
     Route: 048

REACTIONS (7)
  - BRADYCARDIA [None]
  - HYPOTENSION [None]
  - INCORRECT DOSE ADMINISTERED [None]
  - NAUSEA [None]
  - OVERDOSE [None]
  - SUICIDE ATTEMPT [None]
  - VOMITING [None]
